FAERS Safety Report 6374477-9 (Version None)
Quarter: 2009Q3

REPORT INFORMATION
  Report Type: 
  Country: None (occurrence: None)
  Receive Date: 20090924
  Receipt Date: 20090914
  Transmission Date: 20100115
  Serious: No
  Sender: FDA-Public Use
  Company Number: US-B.I. PHARMACEUTICALS,INC./RIDGEFIELD-2009-BP-10750BP

PATIENT
  Age: 73 Year
  Sex: Male

DRUGS (11)
  1. FLOMAX [Suspect]
     Indication: BENIGN PROSTATIC HYPERPLASIA
     Dosage: 0.4 MG
     Route: 048
     Dates: start: 20080101
  2. ANTI REJECTION PROGRAF MED [Concomitant]
     Indication: RENAL DISORDER
  3. PREDNISONE [Concomitant]
     Dosage: 5 MG
  4. REMERON [Concomitant]
     Indication: SLEEP DISORDER
  5. NEPHROCAPS [Concomitant]
     Indication: RENAL DISORDER
  6. NORCO [Concomitant]
     Indication: PAIN
  7. NORCO [Concomitant]
     Indication: OSTEOARTHRITIS
  8. LEVETIRACETA [Concomitant]
  9. MYFORTIC [Concomitant]
     Indication: RENAL DISORDER
  10. CENSIPAR [Concomitant]
     Indication: PARATHYROID DISORDER
  11. ROBAXIN [Concomitant]
     Indication: MUSCLE SPASMS

REACTIONS (5)
  - BLOOD CHOLESTEROL INCREASED [None]
  - INTRAOCULAR PRESSURE INCREASED [None]
  - JOINT SWELLING [None]
  - OEDEMA PERIPHERAL [None]
  - SKIN DISORDER [None]
